FAERS Safety Report 24075020 (Version 1)
Quarter: 2024Q3

REPORT INFORMATION
  Report Type: Spontaneous
  Country: CN (occurrence: CN)
  Receive Date: 20240710
  Receipt Date: 20240710
  Transmission Date: 20241017
  Serious: Yes (Hospitalization, Other)
  Sender: MERCK
  Company Number: CN-009507513-2407CHN003627

PATIENT
  Age: 82 Year
  Sex: Male

DRUGS (3)
  1. KEYTRUDA [Suspect]
     Active Substance: PEMBROLIZUMAB
     Indication: Oesophageal carcinoma
     Dosage: 100 MG, ONCE
     Route: 041
     Dates: start: 20240607, end: 20240607
  2. TEGAFUR [Suspect]
     Active Substance: TEGAFUR
     Indication: Oesophageal carcinoma
     Dosage: 40 MG, BID
     Route: 048
     Dates: start: 20240606, end: 20240611
  3. CATEQUENTINIB DIHYDROCHLORIDE [Suspect]
     Active Substance: CATEQUENTINIB DIHYDROCHLORIDE
     Indication: Oesophageal carcinoma
     Dosage: 10 MG, QD
     Route: 048
     Dates: start: 20240607, end: 20240613

REACTIONS (4)
  - Platelet count decreased [Recovering/Resolving]
  - Asthenia [Unknown]
  - Incorrect dose administered [Unknown]
  - Product use issue [Unknown]

NARRATIVE: CASE EVENT DATE: 20240601
